FAERS Safety Report 23287766 (Version 1)
Quarter: 2023Q4

REPORT INFORMATION
  Report Type: Spontaneous
  Country: CN (occurrence: CN)
  Receive Date: 20231212
  Receipt Date: 20231212
  Transmission Date: 20240109
  Serious: Yes (Hospitalization, Other)
  Sender: FDA-Public Use
  Company Number: CN-BAYER-2023A176473

PATIENT
  Age: 53 Year
  Sex: Female
  Weight: 59 kg

DRUGS (1)
  1. AVELOX [Suspect]
     Active Substance: MOXIFLOXACIN HYDROCHLORIDE
     Indication: Pneumonia
     Dosage: 0.4 G, QD
     Route: 048
     Dates: start: 20231114, end: 20231116

REACTIONS (8)
  - Arrhythmia [Recovering/Resolving]
  - Neurosis [Recovering/Resolving]
  - Chest discomfort [Recovering/Resolving]
  - Palpitations [Recovering/Resolving]
  - Hypothyroidism [None]
  - Nausea [None]
  - Headache [None]
  - Respiratory rate increased [None]

NARRATIVE: CASE EVENT DATE: 20231114
